FAERS Safety Report 6042108-3 (Version None)
Quarter: 2009Q1

REPORT INFORMATION
  Report Type: 
  Country: None (occurrence: None)
  Receive Date: 20090116
  Receipt Date: 20090107
  Transmission Date: 20090719
  Serious: Yes (Other)
  Sender: FDA-Public Use
  Company Number: PHEH2009US00538

PATIENT
  Sex: Female

DRUGS (8)
  1. AREDIA [Suspect]
     Indication: MULTIPLE MYELOMA
     Dosage: 90 MG, QMO
     Route: 042
     Dates: start: 20000401, end: 20020501
  2. ZOMETA [Suspect]
     Indication: MULTIPLE MYELOMA
     Dosage: 4 MG, QMO
     Route: 042
     Dates: start: 20020601, end: 20061001
  3. VELCADE [Concomitant]
  4. THALIDOMIDE [Concomitant]
  5. CYTOXAN [Concomitant]
  6. REVLIMID [Concomitant]
  7. ACYCLOVIR [Concomitant]
  8. AMICAR [Concomitant]

REACTIONS (2)
  - BONE DISORDER [None]
  - PURULENT DISCHARGE [None]
